FAERS Safety Report 8308199-1 (Version None)
Quarter: 2012Q2

REPORT INFORMATION
  Report Type: 
  Country: None (occurrence: None)
  Receive Date: 20120424
  Receipt Date: 20120412
  Transmission Date: 20120825
  Serious: Yes (Hospitalization)
  Sender: FDA-Public Use
  Company Number: DE-ROCHE-1059098

PATIENT
  Sex: Female
  Weight: 80 kg

DRUGS (5)
  1. AVASTIN [Suspect]
     Indication: GLIOBLASTOMA
     Dosage: LAST DOSE PRIOR TO SAE: 28/MAR/2012, TREATMENT DELAYED, CYCLE 2
     Route: 042
     Dates: start: 20120214
  2. LEVOTHYROXINE SODIUM [Concomitant]
     Indication: HYPOTHYROIDISM
     Route: 048
     Dates: start: 19900101
  3. LOMUSTINE [Suspect]
     Indication: GLIOBLASTOMA
     Dosage: LAST DOSE PRIOR TO SAE: 28/MAR/2012, TREATMENT DELAYED, CYCLE 2
     Route: 048
     Dates: start: 20120214
  4. ACETYLSALICYLIC ACID SRT [Concomitant]
     Indication: THROMBOSIS
     Route: 048
     Dates: start: 19920101
  5. LISIHEXAL [Concomitant]
     Indication: HYPERTENSION
     Route: 048
     Dates: start: 19940101

REACTIONS (1)
  - GENERAL PHYSICAL HEALTH DETERIORATION [None]
